FAERS Safety Report 7368704-9 (Version None)
Quarter: 2011Q1

REPORT INFORMATION
  Report Type: 
  Country: None (occurrence: None)
  Receive Date: 20110323
  Receipt Date: 20090925
  Transmission Date: 20110831
  Serious: Yes (Other)
  Sender: FDA-Public Use
  Company Number: US-BAYER-200934816NA

PATIENT
  Sex: Male

DRUGS (12)
  1. HYDROCHLOROTHIAZIDE [Concomitant]
     Dosage: 25MG DAILY
     Route: 048
     Dates: start: 20041006
  2. DOXYCYCLINE [Concomitant]
     Dosage: 100MG TWICE DAILY
     Route: 048
     Dates: start: 20040918
  3. TERAZOSIN HCL [Concomitant]
     Dosage: 1MG NIGHTLY
     Route: 048
  4. VANCOMYCIN [Concomitant]
  5. LISINOPRIL [Concomitant]
     Dosage: 40MG DAILY
     Route: 048
     Dates: start: 20040726
  6. LOVASTATIN [Concomitant]
     Dosage: UNK
     Route: 048
     Dates: start: 20041006
  7. CEFEPIME [Concomitant]
  8. TRASYLOL [Suspect]
     Indication: PRODUCT USED FOR UNKNOWN INDICATION
     Dosage: 2 MILLION KIU PRIME
  9. GLYBURIDE [Concomitant]
     Dosage: 5MG TWICE DAILY
     Route: 048
     Dates: start: 20040918
  10. ALBUTEROL INHALER [Concomitant]
     Dosage: 2 PUFFS EVERY 4HOURS
  11. ATENOLOL [Concomitant]
     Dosage: 50MG TWICE A DAY
     Route: 048
  12. DIFLUCAN [Concomitant]

REACTIONS (11)
  - INJURY [None]
  - RENAL INJURY [None]
  - DEPRESSION [None]
  - ANXIETY [None]
  - PAIN [None]
  - ANHEDONIA [None]
  - RENAL FAILURE [None]
  - MULTI-ORGAN FAILURE [None]
  - EMOTIONAL DISTRESS [None]
  - NERVOUSNESS [None]
  - FEAR [None]
